FAERS Safety Report 12348300 (Version 3)
Quarter: 2016Q2

REPORT INFORMATION
  Report Type: Report from Study
  Country: CA (occurrence: CA)
  Receive Date: 20160509
  Receipt Date: 20160615
  Transmission Date: 20160815
  Serious: Yes (Hospitalization, Other)
  Sender: FDA-Public Use
  Company Number: CA-JNJFOC-20150714500

PATIENT
  Age: 48 Year
  Sex: Male

DRUGS (2)
  1. IMBRUVICA [Suspect]
     Active Substance: IBRUTINIB
     Indication: CHRONIC LYMPHOCYTIC LEUKAEMIA
     Route: 048
     Dates: start: 20150914, end: 20160417
  2. IMBRUVICA [Suspect]
     Active Substance: IBRUTINIB
     Indication: CHRONIC LYMPHOCYTIC LEUKAEMIA
     Route: 048
     Dates: start: 20150601, end: 20150829

REACTIONS (7)
  - Dyspepsia [Not Recovered/Not Resolved]
  - Therapy cessation [Recovered/Resolved]
  - Rash [Not Recovered/Not Resolved]
  - Respiratory tract infection [Recovering/Resolving]
  - Tooth extraction [Recovered/Resolved]
  - Bone marrow transplant [Not Recovered/Not Resolved]
  - Nasopharyngitis [Not Recovered/Not Resolved]

NARRATIVE: CASE EVENT DATE: 201506
